FAERS Safety Report 9364986 (Version 1)
Quarter: 2013Q2

REPORT INFORMATION
  Report Type: Spontaneous
  Country: BR (occurrence: BR)
  Receive Date: 20130624
  Receipt Date: 20130624
  Transmission Date: 20140414
  Serious: Yes (Other)
  Sender: FDA-Public Use
  Company Number: CHNY2013BR001360

PATIENT
  Age: 71 Year
  Sex: Female

DRUGS (5)
  1. BENEFIBER [Suspect]
     Indication: GASTROINTESTINAL DISORDER
     Dosage: UNK, BID
     Route: 048
  2. RIVOTRIL [Concomitant]
     Indication: SEDATION
     Dosage: UNK, UNK
     Route: 048
  3. PLAQUINOL [Concomitant]
     Indication: SJOGREN^S SYNDROME
     Dosage: UNK, UNK
     Route: 048
  4. OLCADIL [Concomitant]
     Indication: SEDATION
     Dosage: UNK, UNK
     Route: 048
  5. DIGEDRAT [Concomitant]
     Indication: GASTROINTESTINAL DISORDER
     Dosage: UNK, UNK
     Route: 048

REACTIONS (5)
  - Urinary tract infection [Unknown]
  - Depression [Unknown]
  - Abdominal pain upper [Unknown]
  - Flatulence [Unknown]
  - Incorrect dose administered [Unknown]
